FAERS Safety Report 6612319-4 (Version None)
Quarter: 2010Q1

REPORT INFORMATION
  Report Type: 
  Country: None (occurrence: None)
  Receive Date: 20100302
  Receipt Date: 20100302
  Transmission Date: 20100710
  Serious: No
  Sender: FDA-Public Use
  Company Number: None

PATIENT
  Age: 49 Year
  Sex: Male
  Weight: 230 kg

DRUGS (1)
  1. LEVAQUIN [Suspect]
     Indication: PNEUMONIA BACTERIAL
     Dosage: 1 PILL DAILY PO
     Route: 048
     Dates: start: 20080808, end: 20080818

REACTIONS (38)
  - AMNESIA [None]
  - ANXIETY [None]
  - ARTHRALGIA [None]
  - ASTHENIA [None]
  - BLINDNESS [None]
  - BURNING SENSATION [None]
  - COCCIDIOIDOMYCOSIS [None]
  - CONFUSIONAL STATE [None]
  - DEAFNESS [None]
  - DIABETES MELLITUS [None]
  - DISTURBANCE IN ATTENTION [None]
  - DIZZINESS [None]
  - DYSGEUSIA [None]
  - DYSPNOEA [None]
  - ECONOMIC PROBLEM [None]
  - EMOTIONAL DISORDER [None]
  - FATIGUE [None]
  - FEELING ABNORMAL [None]
  - GENERAL PHYSICAL CONDITION ABNORMAL [None]
  - HEART RATE INCREASED [None]
  - HEPATIC ENZYME INCREASED [None]
  - INTERVERTEBRAL DISC DEGENERATION [None]
  - MALAISE [None]
  - MUSCULAR WEAKNESS [None]
  - MYALGIA [None]
  - NERVOUSNESS [None]
  - NIGHTMARE [None]
  - PHARYNGEAL OEDEMA [None]
  - PHOTOPHOBIA [None]
  - PRURITUS [None]
  - RASH [None]
  - SKIN EXFOLIATION [None]
  - SUICIDAL IDEATION [None]
  - SYNCOPE [None]
  - TENDON RUPTURE [None]
  - TENDONITIS [None]
  - TINNITUS [None]
  - URTICARIA [None]
